FAERS Safety Report 15952464 (Version 1)
Quarter: 2019Q1

REPORT INFORMATION
  Report Type: Other
  Country: ZM (occurrence: ZM)
  Receive Date: 20190211
  Receipt Date: 20190211
  Transmission Date: 20190417
  Serious: Yes (Life-Threatening, Hospitalization)
  Sender: FDA-Public Use
  Company Number: ZM-NOSTRUM LABORATORIES, INC.-2062487

PATIENT
  Age: 29 Month
  Sex: Male
  Weight: 9.5 kg

DRUGS (4)
  1. SUCCINYLCHOLINE CHLORIDE. [Concomitant]
     Active Substance: SUCCINYLCHOLINE CHLORIDE
     Route: 040
  2. SEVOFLURANE. [Concomitant]
     Active Substance: SEVOFLURANE
     Route: 049
  3. MORPHINE SULFATE. [Suspect]
     Active Substance: MORPHINE SULFATE
     Indication: ANAESTHESIA
     Route: 040
  4. PROPOFOL. [Concomitant]
     Active Substance: PROPOFOL
     Route: 040

REACTIONS (6)
  - Hyperthermia malignant [Recovered/Resolved]
  - Laryngospasm [Recovered/Resolved]
  - Hypoxia [Recovered/Resolved]
  - Apnoea [Recovered/Resolved]
  - Muscle spasms [Recovered/Resolved]
  - Trismus [Recovered/Resolved]
